FAERS Safety Report 12162095 (Version 1)
Quarter: 2016Q1

REPORT INFORMATION
  Report Type: Spontaneous
  Country: US (occurrence: None)
  Receive Date: 20160307
  Receipt Date: 20160307
  Transmission Date: 20160526
  Serious: Yes (Other)
  Sender: FDA-Public Use
  Company Number: None

PATIENT
  Age: 52 Year
  Sex: Male
  Weight: 140.62 kg

DRUGS (7)
  1. ALLEGRA [Concomitant]
     Active Substance: FEXOFENADINE HYDROCHLORIDE
  2. GABEPENTIN [Concomitant]
  3. SULFAMETH/TRIMETHOPRIM 800/160MG AMNEAL [Suspect]
     Active Substance: SULFAMETHOXAZOLE\TRIMETHOPRIM
     Indication: NAIL OPERATION
     Dosage: 1 PILL ONCE DAILY  TAKEN BY MOUTH
     Route: 048
     Dates: start: 20151203, end: 20151204
  4. METHOCARBAMAL [Concomitant]
  5. SULFAMETH/TRIMETHOPRIM 800/160MG AMNEAL [Suspect]
     Active Substance: SULFAMETHOXAZOLE\TRIMETHOPRIM
     Indication: LOCALISED INFECTION
     Dosage: 1 PILL ONCE DAILY  TAKEN BY MOUTH
     Route: 048
     Dates: start: 20151203, end: 20151204
  6. IBUPROFEN. [Concomitant]
     Active Substance: IBUPROFEN
  7. TRAMADOL. [Concomitant]
     Active Substance: TRAMADOL

REACTIONS (4)
  - Rash [None]
  - Penile swelling [None]
  - Hypersensitivity [None]
  - Fungal infection [None]

NARRATIVE: CASE EVENT DATE: 20151204
